FAERS Safety Report 15623236 (Version 1)
Quarter: 2018Q4

REPORT INFORMATION
  Report Type: Spontaneous
  Country: TW (occurrence: TW)
  Receive Date: 20181115
  Receipt Date: 20181115
  Transmission Date: 20190205
  Serious: Yes (Death)
  Sender: FDA-Public Use
  Company Number: TW-ELI_LILLY_AND_COMPANY-TW201811006249

PATIENT
  Age: 37 Year
  Sex: Male

DRUGS (2)
  1. ALIMTA [Suspect]
     Active Substance: PEMETREXED DISODIUM
     Indication: LUNG NEOPLASM MALIGNANT
     Dosage: 900 MG, MONTHLY (1/M)
     Route: 042
     Dates: start: 20130716, end: 20181023
  2. CISPLATIN. [Concomitant]
     Active Substance: CISPLATIN
     Indication: LUNG NEOPLASM MALIGNANT
     Dosage: 75 MG/ML, MONTHLY (1/M)
     Route: 042
     Dates: start: 20130716, end: 20131203

REACTIONS (1)
  - Pericarditis constrictive [Fatal]

NARRATIVE: CASE EVENT DATE: 20181113
